FAERS Safety Report 5774744-3 (Version None)
Quarter: 2008Q2

REPORT INFORMATION
  Report Type: 
  Country: None (occurrence: None)
  Receive Date: 20080613
  Receipt Date: 20080613
  Transmission Date: 20081010
  Serious: Yes (Death)
  Sender: FDA-Public Use
  Company Number: None

PATIENT
  Sex: Male

DRUGS (1)
  1. FOSAMAX [Suspect]
     Dosage: 1 WEEKY MOUTH 6 PILLS
     Route: 048
     Dates: start: 20061220

REACTIONS (8)
  - APHONIA [None]
  - DEAFNESS UNILATERAL [None]
  - DISCOMFORT [None]
  - DYSPHAGIA [None]
  - OESOPHAGEAL DISORDER [None]
  - OESOPHAGEAL ULCER [None]
  - ORAL INTAKE REDUCED [None]
  - STARVATION [None]
